FAERS Safety Report 4678220-0 (Version None)
Quarter: 2005Q2

REPORT INFORMATION
  Report Type: 
  Country: None (occurrence: None)
  Receive Date: 20050527
  Receipt Date: 20050519
  Transmission Date: 20051028
  Serious: Yes (Other)
  Sender: FDA-Public Use
  Company Number: 2005077876

PATIENT
  Age: 40 Year
  Sex: Female

DRUGS (3)
  1. ZOLOFT [Suspect]
     Indication: DEPRESSION
     Dosage: 50 MG, ORAL
     Route: 048
     Dates: start: 20041126, end: 20050504
  2. PROPRANOLOL [Concomitant]
  3. ALPRAZOLAM [Concomitant]

REACTIONS (3)
  - ABNORMAL BEHAVIOUR [None]
  - GAMBLING [None]
  - OBSESSIVE-COMPULSIVE DISORDER [None]
